FAERS Safety Report 6552935-1 (Version None)
Quarter: 2010Q1

REPORT INFORMATION
  Report Type: 
  Country: None (occurrence: None)
  Receive Date: 20100122
  Receipt Date: 20100108
  Transmission Date: 20100710
  Serious: Yes (Other)
  Sender: FDA-Public Use
  Company Number: CERZ-1001104

PATIENT

DRUGS (1)
  1. CEREZYME [Suspect]
     Indication: GAUCHER'S DISEASE
     Dosage: INTRAVENOUS
     Route: 042

REACTIONS (2)
  - NERVOUS SYSTEM DISORDER [None]
  - RETINAL ARTERY OCCLUSION [None]
